FAERS Safety Report 11792742 (Version 1)
Quarter: 2015Q4

REPORT INFORMATION
  Report Type: Spontaneous
  Country: GB (occurrence: None)
  Receive Date: 20151130
  Receipt Date: 20151130
  Transmission Date: 20160305
  Serious: Yes (Life-Threatening, Hospitalization)
  Sender: FDA-Public Use
  Company Number: 2015RR-106614

PATIENT
  Age: 80 Year
  Sex: Female

DRUGS (2)
  1. DONEPEZIL (DONEPEZIL) UNKNOWN [Suspect]
     Active Substance: DONEPEZIL
     Indication: DEMENTIA ALZHEIMER^S TYPE
  2. DONEPEZIL (DONEPEZIL) UNKNOWN [Suspect]
     Active Substance: DONEPEZIL
     Indication: DEMENTIA ALZHEIMER^S TYPE

REACTIONS (6)
  - Torsade de pointes [None]
  - Vomiting [None]
  - Condition aggravated [None]
  - Therapy change [None]
  - Diarrhoea [None]
  - Confusional state [None]
